FAERS Safety Report 7484135-5 (Version None)
Quarter: 2011Q2

REPORT INFORMATION
  Report Type: 
  Country: None (occurrence: None)
  Receive Date: 20110513
  Receipt Date: 20110513
  Transmission Date: 20111010
  Serious: Yes (Hospitalization, Other)
  Sender: FDA-Public Use
  Company Number: None

PATIENT
  Age: 58 Year
  Sex: Female
  Weight: 63.5036 kg

DRUGS (1)
  1. VENLAFAXINE HCL EXTENDED-RELEASE [Suspect]
     Indication: MAJOR DEPRESSION
     Dosage: 150 MG (2) QAM BY MOUTH
     Route: 048
     Dates: start: 20110228

REACTIONS (3)
  - MALAISE [None]
  - EMOTIONAL DISORDER [None]
  - PRODUCT SUBSTITUTION ISSUE [None]
